FAERS Safety Report 4290215-8 (Version None)
Quarter: 2004Q1

REPORT INFORMATION
  Report Type: 
  Country: None (occurrence: None)
  Receive Date: 20040210
  Receipt Date: 20040202
  Transmission Date: 20041129
  Serious: Yes (Death)
  Sender: FDA-Public Use
  Company Number: PHBS2004DE01599

PATIENT
  Age: 67 Year
  Sex: Female

DRUGS (38)
  1. PANTOZOL #AT [Suspect]
     Indication: PROPHYLAXIS AGAINST GASTROINTESTINAL ULCER
     Dosage: 40 MG/DAY
     Route: 048
     Dates: start: 20010720, end: 20010802
  2. AMITRIPTYLINE HYDROCHLORIDE [Suspect]
     Indication: DEPRESSION
     Dosage: 10 MG, BID
     Route: 048
     Dates: start: 20010705
  3. AMITRIPTYLINE HYDROCHLORIDE [Suspect]
     Dosage: 25 MG/DAY
     Route: 048
  4. DIAZEPAM [Suspect]
     Indication: RESTLESSNESS
     Dosage: 5 MG/DAY
     Route: 042
     Dates: start: 20010720, end: 20010720
  5. CIPROBAY [Suspect]
     Indication: CHRONIC OBSTRUCTIVE AIRWAYS DISEASE
     Dosage: 2 DF/DAY
     Route: 048
     Dates: start: 20010720, end: 20010724
  6. LASIX [Suspect]
     Indication: RENAL FAILURE
     Dosage: 1 DF/DAY
     Route: 042
     Dates: start: 20010720, end: 20010720
  7. LASIX [Suspect]
     Dosage: 1 DF/DAY
     Route: 042
     Dates: start: 20010725, end: 20010725
  8. ALT-INSULIN [Suspect]
     Indication: DIABETES MELLITUS
     Route: 058
     Dates: start: 20010720, end: 20010802
  9. ACC [Suspect]
     Dosage: 1 DF/DAY
     Route: 048
     Dates: start: 20010720, end: 20010802
  10. ATROVENT [Suspect]
     Indication: CHRONIC OBSTRUCTIVE AIRWAYS DISEASE
     Dates: start: 20010720, end: 20010802
  11. BRONCHORETARD [Suspect]
     Indication: CHRONIC OBSTRUCTIVE AIRWAYS DISEASE
     Dosage: 350 MG/DAY
     Route: 048
     Dates: start: 20010720, end: 20010802
  12. BRONCHORETARD [Suspect]
     Dosage: 12 DF/DAY
     Route: 042
  13. BRONCHOSPASMIN [Suspect]
     Indication: CHRONIC OBSTRUCTIVE AIRWAYS DISEASE
     Dosage: 1 DF, Q2H
     Route: 042
     Dates: start: 20010720
  14. FORADIL [Suspect]
     Indication: CHRONIC OBSTRUCTIVE AIRWAYS DISEASE
     Dates: start: 20010720, end: 20010802
  15. SOLU-DECORTIN-H [Suspect]
     Indication: CHRONIC OBSTRUCTIVE AIRWAYS DISEASE
     Dosage: 100 MG/DAY
     Route: 042
     Dates: start: 20010720, end: 20010802
  16. SOLU-DECORTIN-H [Suspect]
     Dosage: 50 MG/DAY
     Dates: start: 20010720
  17. LEFAX [Suspect]
     Indication: FLATULENCE
     Route: 048
     Dates: start: 20010721, end: 20010721
  18. ALLOPURINOL [Suspect]
     Indication: HYPERURICAEMIA
     Dosage: 300 MG/DAY
     Route: 048
     Dates: start: 20010721, end: 20010802
  19. NITRO [Suspect]
     Indication: LEFT VENTRICULAR FAILURE
     Dosage: 50 MG/DAY
     Route: 042
     Dates: start: 20010723, end: 20010724
  20. HEPARIN [Suspect]
     Indication: PROPHYLAXIS
     Dosage: 2500 IU/DAY
     Route: 042
     Dates: start: 20010123, end: 20010802
  21. NORVASC [Suspect]
     Indication: ESSENTIAL HYPERTENSION
     Dosage: 10 MG/DAY
     Route: 048
     Dates: start: 20010723, end: 20010802
  22. VOLMAC [Suspect]
     Indication: CHRONIC OBSTRUCTIVE AIRWAYS DISEASE
     Dosage: 8 MG/DAY
     Route: 048
     Dates: start: 20010723, end: 20010802
  23. UNAT [Suspect]
     Indication: LEFT VENTRICULAR FAILURE
     Dosage: 10 MG/DAY
     Route: 048
     Dates: start: 20010723, end: 20010802
  24. LACTULOSE [Suspect]
     Indication: CONSTIPATION
     Dosage: 20 ML/DAY
     Route: 048
     Dates: start: 20010724, end: 20010724
  25. AQUAPHOR [Suspect]
     Indication: LEFT VENTRICULAR FAILURE
     Dosage: 1 DF/DAY
     Route: 048
     Dates: start: 20010724, end: 20010802
  26. ACETYLSALICYLIC ACID [Suspect]
     Indication: PROPHYLAXIS
     Dosage: 1 DF/DAY
     Route: 048
     Dates: start: 20010725, end: 20010802
  27. ATORVASTATIN CALCIUM [Suspect]
     Indication: HYPERLIPIDAEMIA
     Dosage: 10 MG/DAY
     Route: 048
     Dates: start: 20010725, end: 20010802
  28. CIBACEN [Suspect]
     Indication: CARDIAC FAILURE
     Dosage: 5 MG/DAY
     Route: 048
     Dates: start: 20010726, end: 20010802
  29. BISACODYL [Suspect]
     Indication: CONSTIPATION
     Dosage: 1 DF/DAY
     Route: 054
     Dates: start: 20010727, end: 20010727
  30. SEREVENT [Concomitant]
     Dates: start: 20010705, end: 20010720
  31. DECORTIN [Concomitant]
     Dates: start: 20010705, end: 20010720
  32. JUNIK [Concomitant]
     Dates: start: 20010705, end: 20010720
  33. ISOPTIN TAB [Concomitant]
     Dates: start: 20010705, end: 20010802
  34. VIGANTOLETTEN ^BAYER^ [Concomitant]
     Dates: start: 20010705, end: 20010802
  35. CALCIUM [Concomitant]
     Dates: start: 20010721, end: 20010802
  36. RINGER [Concomitant]
     Dates: start: 20010720, end: 20010802
  37. KALINOR [Concomitant]
     Dates: start: 20010721, end: 20010802
  38. KALIUMKLORID [Concomitant]
     Dates: start: 20010725

REACTIONS (9)
  - CARDIOVASCULAR DISORDER [None]
  - EXANTHEM [None]
  - ORAL MUCOSAL BLISTERING [None]
  - ORAL MUCOSAL ERUPTION [None]
  - PNEUMONIA [None]
  - PYREXIA [None]
  - RENAL FAILURE [None]
  - SEPTIC SHOCK [None]
  - TOXIC EPIDERMAL NECROLYSIS [None]
